FAERS Safety Report 14787029 (Version 1)
Quarter: 2018Q2

REPORT INFORMATION
  Report Type: Spontaneous
  Country: FR (occurrence: FR)
  Receive Date: 20180420
  Receipt Date: 20180420
  Transmission Date: 20180711
  Serious: Yes (Other)
  Sender: FDA-Public Use
  Company Number: FR-CONCORDIA PHARMACEUTICALS INC.-E2B_00011156

PATIENT
  Age: 25 Year
  Sex: Female
  Weight: 46 kg

DRUGS (15)
  1. UVEDOSE [Concomitant]
     Active Substance: CHOLECALCIFEROL
  2. CACIT VITAMINE D3 [Concomitant]
     Active Substance: CALCIUM CARBONATE\CHOLECALCIFEROL
  3. HUMALOG [Concomitant]
     Active Substance: INSULIN LISPRO
  4. INEXIUM [Concomitant]
     Active Substance: ESOMEPRAZOLE
  5. ZELITREX [Concomitant]
     Active Substance: VALACYCLOVIR HYDROCHLORIDE
  6. MYFORTIC [Concomitant]
     Active Substance: MYCOPHENOLATE SODIUM
  7. TRIATEC (RAMIPRIL) [Concomitant]
     Active Substance: RAMIPRIL
  8. FOSAMAX [Concomitant]
     Active Substance: ALENDRONATE SODIUM
  9. SEROPLEX [Concomitant]
     Active Substance: ESCITALOPRAM OXALATE
  10. PREDNISOLONE. [Suspect]
     Active Substance: PREDNISOLONE
     Indication: TRANSPLANT REJECTION
     Route: 048
     Dates: start: 201311
  11. PROGRAF [Concomitant]
     Active Substance: TACROLIMUS\TACROLIMUS ANHYDROUS
  12. CODOLIPRANE [Concomitant]
     Active Substance: ACETAMINOPHEN\CODEINE PHOSPHATE
  13. CREON [Concomitant]
     Active Substance: PANCRELIPASE AMYLASE\PANCRELIPASE LIPASE\PANCRELIPASE PROTEASE
  14. STILNOX [Concomitant]
     Active Substance: ZOLPIDEM TARTRATE
  15. SPASFON (PHLOROGLUCINOL, TRIMETHYLPHLOROGLUCINOL) [Concomitant]
     Active Substance: PHLOROGLUCINOL\1,3,5-TRIMETHOXYBENZENE

REACTIONS (1)
  - Diabetes mellitus inadequate control [Recovered/Resolved]

NARRATIVE: CASE EVENT DATE: 201711
